FAERS Safety Report 9828910 (Version 2)
Quarter: 2015Q4

REPORT INFORMATION
  Report Type: Spontaneous
  Country: CN (occurrence: CN)
  Receive Date: 20140118
  Receipt Date: 20151117
  Transmission Date: 20160305
  Serious: Yes (Other)
  Sender: FDA-Public Use
  Company Number: CN-ABBVIE-14P-035-1191227-00

PATIENT
  Age: 25 Year
  Sex: Female

DRUGS (2)
  1. DEPAKINE CHRONO [Suspect]
     Active Substance: VALPROATE SODIUM
     Indication: EPILEPSY
     Route: 048
     Dates: start: 201107
  2. DEPAKINE CHRONO [Suspect]
     Active Substance: VALPROATE SODIUM
     Route: 048
     Dates: start: 201207, end: 201401

REACTIONS (13)
  - Headache [Not Recovered/Not Resolved]
  - Exposure during pregnancy [Unknown]
  - Nausea [Not Recovered/Not Resolved]
  - Muscle twitching [Not Recovered/Not Resolved]
  - Cyanosis [Not Recovered/Not Resolved]
  - Tongue biting [Not Recovered/Not Resolved]
  - Pain [Not Recovered/Not Resolved]
  - Tooth discolouration [Not Recovered/Not Resolved]
  - Fall [Not Recovered/Not Resolved]
  - Trismus [Recovered/Resolved]
  - Strabismus [Not Recovered/Not Resolved]
  - Epilepsy [Recovered/Resolved]
  - Foaming at mouth [Not Recovered/Not Resolved]

NARRATIVE: CASE EVENT DATE: 20121125
